FAERS Safety Report 4300478-8 (Version None)
Quarter: 2004Q1

REPORT INFORMATION
  Report Type: 
  Country: None (occurrence: None)
  Receive Date: 20040220
  Receipt Date: 20040120
  Transmission Date: 20041129
  Serious: Yes (Hospitalization, Other)
  Sender: FDA-Public Use
  Company Number: JP-BRISTOL-MYERS SQUIBB COMPANY-12483160

PATIENT
  Age: 42 Year
  Sex: Female

DRUGS (3)
  1. KENACORT-A [Suspect]
     Indication: ANGIOLYMPHOID HYPERPLASIA WITH EOSINOPHILIA
     Dosage: DOSE VALUE:  THE 1ST,2ND + 4TH INJECTION WAS 0.2 ML, AND THE 3RD WAS 0.3 ML.
     Route: 001
     Dates: start: 20020826, end: 20030227
  2. PREDONINE [Concomitant]
     Route: 048
     Dates: start: 20030213, end: 20030313
  3. MUCOSTA [Concomitant]
     Route: 048
     Dates: start: 20030213, end: 20030313

REACTIONS (2)
  - ANAPHYLACTIC SHOCK [None]
  - FEELING ABNORMAL [None]
